FAERS Safety Report 7250240-1 (Version None)
Quarter: 2011Q1

REPORT INFORMATION
  Report Type: 
  Country: None (occurrence: None)
  Receive Date: 20110128
  Receipt Date: 20101227
  Transmission Date: 20110831
  Serious: Yes (Hospitalization)
  Sender: FDA-Public Use
  Company Number: US-BAYER-201025171NA

PATIENT
  Sex: Female
  Weight: 108.8 kg

DRUGS (9)
  1. NAPROXEN [Concomitant]
     Dosage: 500 MG, UNK
     Dates: start: 20090215
  2. YASMIN [Suspect]
     Indication: PRODUCT USED FOR UNKNOWN INDICATION
     Dosage: UNK
     Route: 048
     Dates: start: 20050101, end: 20090801
  3. IBUPROFEN [Concomitant]
     Indication: PAIN IN EXTREMITY
     Dosage: UNK UNK, PRN
  4. UNCODEABLE ^UNCLASSIFIABLE^ [Concomitant]
     Indication: PYREXIA
  5. LUNESTA [Concomitant]
     Dosage: 3 MG, UNK
  6. SYNTHROID [Concomitant]
     Indication: HYPOTHYROIDISM
     Dosage: UNK
     Dates: start: 19950101
  7. UNCODEABLE ^UNCLASSIFIABLE^ [Concomitant]
     Indication: HEADACHE
  8. OCELLA [Suspect]
     Indication: PRODUCT USED FOR UNKNOWN INDICATION
     Dosage: UNK
     Dates: start: 20050101, end: 20090801
  9. UNCODEABLE ^UNCLASSIFIABLE^ [Concomitant]
     Indication: PAIN
     Dosage: 500 MG, UNK

REACTIONS (5)
  - EMBOLISM VENOUS [None]
  - OEDEMA PERIPHERAL [None]
  - THROMBOSIS [None]
  - PAIN IN EXTREMITY [None]
  - DEEP VEIN THROMBOSIS [None]
